FAERS Safety Report 6171275-6 (Version None)
Quarter: 2009Q2

REPORT INFORMATION
  Report Type: 
  Country: None (occurrence: None)
  Receive Date: 20090428
  Receipt Date: 20090428
  Transmission Date: 20091009
  Serious: No
  Sender: FDA-Public Use
  Company Number: None

PATIENT
  Age: 32 Year
  Sex: Female
  Weight: 88.4514 kg

DRUGS (1)
  1. DIVALPROEX SODIUM [Suspect]
     Dosage: 750 MG DAILY PO
     Route: 048

REACTIONS (1)
  - NEUTROPHIL COUNT DECREASED [None]
